FAERS Safety Report 5874883-2 (Version None)
Quarter: 2008Q3

REPORT INFORMATION
  Report Type: 
  Country: None (occurrence: None)
  Receive Date: 20080904
  Receipt Date: 20080820
  Transmission Date: 20090109
  Serious: Yes (Other)
  Sender: FDA-Public Use
  Company Number: SPV1-2008-01630

PATIENT
  Age: 68 Year
  Sex: Male

DRUGS (2)
  1. MIDODRINE HYDROCHLORIDE [Suspect]
     Dosage: 7.5 MG, 3X/DAY:TID, ORAL
     Route: 048
     Dates: start: 20030731
  2. SYNACTHENE (TETRACOSACTIDE) INJECTION [Concomitant]

REACTIONS (1)
  - LEUKOPENIA [None]
